FAERS Safety Report 8724153 (Version 2)
Quarter: 2012Q4

REPORT INFORMATION
  Report Type: Report from Study
  Country: FR (occurrence: FR)
  Receive Date: 20120815
  Receipt Date: 20121221
  Transmission Date: 20130627
  Serious: Yes (Hospitalization)
  Sender: FDA-Public Use
  Company Number: PHHY2012FR069790

PATIENT
  Age: 40 Year
  Sex: Male

DRUGS (1)
  1. STI571 [Suspect]
     Indication: CHRONIC MYELOID LEUKAEMIA
     Dosage: 400 mg, daily
     Route: 048
     Dates: start: 20050426, end: 201204

REACTIONS (5)
  - Hepatitis [Recovering/Resolving]
  - Hepatitis cholestatic [Recovering/Resolving]
  - Hydrocholecystis [Recovering/Resolving]
  - Pancreatitis [Recovering/Resolving]
  - Liver disorder [Recovering/Resolving]
